FAERS Safety Report 8488438-7 (Version None)
Quarter: 2012Q3

REPORT INFORMATION
  Report Type: 
  Country: None (occurrence: None)
  Receive Date: 20120705
  Receipt Date: 20120626
  Transmission Date: 20120928
  Serious: Yes (Other)
  Sender: FDA-Public Use
  Company Number: US-BAYER-2012-043006

PATIENT
  Age: 42 Year
  Sex: Female
  Weight: 77.551 kg

DRUGS (5)
  1. YAZ [Suspect]
     Indication: MENOPAUSAL SYMPTOMS
  2. YAZ [Suspect]
     Indication: MENSTRUATION IRREGULAR
     Dosage: UNK
     Dates: start: 20090101, end: 20090812
  3. IBUPROFEN (ADVIL) [Concomitant]
     Dosage: OTC +#8211; AS NEEDED
  4. YASMIN [Suspect]
     Indication: MENSTRUATION IRREGULAR
     Dosage: UNK
     Dates: start: 20070101, end: 20090101
  5. YASMIN [Suspect]
     Indication: MENOPAUSAL SYMPTOMS

REACTIONS (8)
  - PNEUMONIA [None]
  - PULMONARY EMBOLISM [None]
  - PAIN [None]
  - OEDEMA PERIPHERAL [None]
  - DEEP VEIN THROMBOSIS [None]
  - PAIN IN EXTREMITY [None]
  - INJURY [None]
  - DYSPNOEA [None]
